FAERS Safety Report 4704565-1 (Version None)
Quarter: 2005Q2

REPORT INFORMATION
  Report Type: 
  Country: None (occurrence: None)
  Receive Date: 20050629
  Receipt Date: 20050620
  Transmission Date: 20051028
  Serious: Yes (Hospitalization)
  Sender: FDA-Public Use
  Company Number: 2005091244

PATIENT
  Age: 31 Year
  Sex: Female

DRUGS (2)
  1. AZULFUDINE EN (SULFASALAZINE) [Suspect]
     Indication: RHEUMATOID ARTHRITIS
     Dosage: 1000 MG, ORAL
     Route: 048
     Dates: start: 20050602, end: 20050616
  2. PREDNISONE [Concomitant]

REACTIONS (1)
  - TOXIC SKIN ERUPTION [None]
